FAERS Safety Report 8605461-X (Version None)
Quarter: 2012Q3

REPORT INFORMATION
  Report Type: 
  Country: None (occurrence: None)
  Receive Date: 20120820
  Receipt Date: 20120810
  Transmission Date: 20120928
  Serious: Yes (Hospitalization)
  Sender: FDA-Public Use
  Company Number: JP-SANOFI-AVENTIS-2012SA035482

PATIENT
  Age: 55 Year
  Sex: Female
  Weight: 52 kg

DRUGS (30)
  1. OXALIPLATIN [Suspect]
     Dosage: INJECTION
     Route: 041
     Dates: start: 20120531, end: 20120531
  2. OXALIPLATIN [Suspect]
     Dosage: INJECTION
     Route: 041
     Dates: start: 20120615, end: 20120615
  3. LEUCOVORIN CALCIUM [Suspect]
     Route: 048
     Dates: start: 20120629, end: 20120705
  4. TS-1 [Suspect]
     Route: 048
     Dates: start: 20120629, end: 20120705
  5. OMEPRAZOLE [Concomitant]
     Dates: start: 20120725, end: 20120725
  6. ADELAVIN [Concomitant]
     Dates: start: 20120725, end: 20120725
  7. LEUCOVORIN CALCIUM [Suspect]
     Route: 048
     Dates: start: 20120615, end: 20120621
  8. NEO-MINOPHAGEN C [Concomitant]
     Dates: start: 20120725, end: 20120725
  9. OXALIPLATIN [Suspect]
     Indication: GASTRIC CANCER
     Dosage: INJECTION
     Route: 041
     Dates: start: 20120427, end: 20120427
  10. OXALIPLATIN [Suspect]
     Dosage: INJECTION
     Route: 041
     Dates: start: 20120803, end: 20120803
  11. TS-1 [Suspect]
     Indication: GASTRIC CANCER
     Route: 048
     Dates: start: 20120427, end: 20120503
  12. ZOLPIDEM [Suspect]
     Indication: INSOMNIA
     Route: 048
     Dates: start: 20120420
  13. TRAMADOL HYDROCHLORIDE [Suspect]
     Indication: CANCER PAIN
     Route: 048
     Dates: start: 20120419
  14. TS-1 [Suspect]
     Route: 048
     Dates: start: 20120531, end: 20120606
  15. OXALIPLATIN [Suspect]
     Dosage: INJECTION
     Route: 041
     Dates: start: 20120629, end: 20120629
  16. LEUCOVORIN CALCIUM [Suspect]
     Route: 048
     Dates: start: 20120803
  17. LEUCOVORIN CALCIUM [Suspect]
     Route: 048
     Dates: start: 20120531, end: 20120606
  18. ACETAMINOPHEN [Suspect]
     Indication: CANCER PAIN
     Route: 048
     Dates: start: 20120417
  19. MAGLAX [Suspect]
     Indication: CONSTIPATION
     Route: 048
     Dates: start: 20120501
  20. PREDNISOLONE [Suspect]
     Indication: VIITH NERVE PARALYSIS
     Route: 048
     Dates: start: 20120630
  21. FLUMARIN [Concomitant]
     Dates: start: 20120725, end: 20120729
  22. TS-1 [Suspect]
     Route: 048
     Dates: start: 20120803
  23. TS-1 [Suspect]
     Route: 048
     Dates: start: 20120615, end: 20120621
  24. WARFARIN SODIUM [Suspect]
     Indication: DEEP VEIN THROMBOSIS
     Route: 048
     Dates: start: 20120514
  25. SELTOUCH [Suspect]
     Indication: OEDEMA PERIPHERAL
     Dosage: FORM: TAPE (INCLUDING POULTICE)
     Route: 061
     Dates: start: 20120514
  26. PENTAZOCINE LACTATE [Concomitant]
     Dates: start: 20120717, end: 20120718
  27. LEUCOVORIN CALCIUM [Suspect]
     Indication: GASTRIC CANCER
     Route: 048
     Dates: start: 20120427, end: 20120503
  28. DEXALTIN [Suspect]
     Indication: STOMATITIS
     Dosage: FORM: OINTMENT , CREAM
     Route: 061
     Dates: start: 20120713
  29. FLURBIPROFEN [Concomitant]
     Dates: start: 20120717, end: 20120718
  30. SOLDEM 1 [Concomitant]
     Dates: start: 20120720, end: 20120720

REACTIONS (5)
  - MALAISE [None]
  - PULMONARY ARTERY THROMBOSIS [None]
  - DECREASED APPETITE [None]
  - DEEP VEIN THROMBOSIS [None]
  - CHOLECYSTITIS ACUTE [None]
